FAERS Safety Report 7402988-3 (Version None)
Quarter: 2011Q2

REPORT INFORMATION
  Report Type: 
  Country: None (occurrence: None)
  Receive Date: 20110408
  Receipt Date: 20110315
  Transmission Date: 20111010
  Serious: No
  Sender: FDA-Public Use
  Company Number: US-B.I. PHARMACEUTICALS,INC./RIDGEFIELD-2011-BP-06450BP

PATIENT
  Sex: Male

DRUGS (1)
  1. PRADAXA [Suspect]
     Indication: ATRIAL FIBRILLATION
     Dosage: 300 MEQ
     Route: 048
     Dates: start: 20110101

REACTIONS (4)
  - HEADACHE [None]
  - EPISTAXIS [None]
  - DIARRHOEA [None]
  - SINUS HEADACHE [None]
